FAERS Safety Report 7083718-4 (Version None)
Quarter: 2010Q4

REPORT INFORMATION
  Report Type: 
  Country: None (occurrence: None)
  Receive Date: 20101103
  Receipt Date: 20101103
  Transmission Date: 20110411
  Serious: Yes (Other)
  Sender: FDA-Public Use
  Company Number: None

PATIENT
  Sex: Female
  Weight: 81.4 kg

DRUGS (1)
  1. PARAGARD COPPER IUD DURAMED PHARMACEUTICALS [Suspect]
     Indication: INTRA-UTERINE CONTRACEPTIVE DEVICE INSERTION
     Dosage: NA NA

REACTIONS (1)
  - PREGNANCY WITH CONTRACEPTIVE DEVICE [None]
